FAERS Safety Report 8348020-9 (Version None)
Quarter: 2012Q2

REPORT INFORMATION
  Report Type: 
  Country: None (occurrence: None)
  Receive Date: 20120509
  Receipt Date: 20120430
  Transmission Date: 20120825
  Serious: Yes (Hospitalization)
  Sender: FDA-Public Use
  Company Number: US-ACTELION-A-NJ2012-61716

PATIENT

DRUGS (18)
  1. LOPRESSOR [Concomitant]
  2. POTASSIUM CHLORIDE [Concomitant]
  3. COUMADIN [Concomitant]
  4. TORSEMIDE [Concomitant]
  5. BACTRIM [Concomitant]
  6. NORVASC [Concomitant]
  7. OXYGEN [Concomitant]
  8. ALLOPURINOL [Concomitant]
  9. TRACLEER [Suspect]
     Indication: PULMONARY ARTERIAL HYPERTENSION
     Dosage: UNK
     Route: 048
     Dates: start: 20100616
  10. ZAROXOLYN [Concomitant]
  11. COLCHICINE [Concomitant]
  12. SYNTHROID [Concomitant]
  13. ACETYLSALICYLIC ACID SRT [Concomitant]
  14. COLACE [Concomitant]
  15. PRILOSEC [Concomitant]
  16. VANCOMYCIN [Concomitant]
  17. APRESOLINE [Concomitant]
  18. NOVOLOG [Concomitant]

REACTIONS (9)
  - BACK PAIN [None]
  - GAIT DISTURBANCE [None]
  - RADICULITIS LUMBOSACRAL [None]
  - LUMBAR SPINAL STENOSIS [None]
  - FRACTURED SACRUM [None]
  - RADICULITIS CERVICAL [None]
  - RENAL DISORDER [None]
  - URINARY TRACT INFECTION [None]
  - INTERVERTEBRAL DISCITIS [None]
